FAERS Safety Report 6629639-X (Version None)
Quarter: 2010Q1

REPORT INFORMATION
  Report Type: 
  Country: None (occurrence: None)
  Receive Date: 20100310
  Receipt Date: 20100310
  Transmission Date: 20100710
  Serious: Yes (Life-Threatening, Hospitalization)
  Sender: FDA-Public Use
  Company Number: None

PATIENT
  Sex: Female
  Weight: 66.6788 kg

DRUGS (9)
  1. PREMARIN [Suspect]
     Indication: MENOPAUSE
     Dosage: 1.25 MG ONE DAILY
     Dates: start: 19820101, end: 20020101
  2. PREMARIN [Suspect]
     Dosage: 0.65 MG. ONE DAILY
  3. ATENOLOL [Concomitant]
  4. HYZAAR [Concomitant]
  5. LORAZEPAM [Concomitant]
  6. PAXIL [Concomitant]
  7. LOVASTATIN [Concomitant]
  8. ASPIRIN [Concomitant]
  9. DARVOCET [Concomitant]

REACTIONS (2)
  - BREAST PROSTHESIS USER [None]
  - MASTECTOMY [None]
